FAERS Safety Report 19570504 (Version 2)
Quarter: 2021Q3

REPORT INFORMATION
  Report Type: Spontaneous
  Country: US (occurrence: US)
  Receive Date: 20210715
  Receipt Date: 20210728
  Transmission Date: 20211014
  Serious: Yes (Death, Life-Threatening, Hospitalization)
  Sender: FDA-Public Use
  Company Number: US-TEVA-2021-US-1931367

PATIENT
  Age: 68 Year
  Sex: Male

DRUGS (3)
  1. PREDNISONE. [Suspect]
     Active Substance: PREDNISONE
     Indication: GRANULOMATOSIS WITH POLYANGIITIS
     Route: 065
  2. AZATHIOPRINE. [Suspect]
     Active Substance: AZATHIOPRINE
     Indication: GRANULOMATOSIS WITH POLYANGIITIS
     Route: 065
  3. BACTRIM [Suspect]
     Active Substance: SULFAMETHOXAZOLE\TRIMETHOPRIM
     Indication: PROPHYLAXIS
     Route: 065

REACTIONS (10)
  - Mediastinal haemorrhage [Unknown]
  - Cardiac arrest [Unknown]
  - Thrombocytopenia [Unknown]
  - Lymphopenia [Unknown]
  - Ventricular fibrillation [Unknown]
  - Aortic valve incompetence [Unknown]
  - Fungal endocarditis [Fatal]
  - Cardiogenic shock [Unknown]
  - Cardiac ventricular thrombosis [Unknown]
  - Trichosporon infection [Fatal]
